FAERS Safety Report 4561028-4 (Version None)
Quarter: 2005Q1

REPORT INFORMATION
  Report Type: 
  Country: None (occurrence: None)
  Receive Date: 20050126
  Receipt Date: 20040816
  Transmission Date: 20050727
  Serious: No
  Sender: FDA-Public Use
  Company Number: US-BRISTOL-MYERS SQUIBB COMPANY-12678850

PATIENT
  Sex: Female

DRUGS (6)
  1. GLUCOPHAGE [Suspect]
     Dosage: STARTED ON 500MG/DAY, INCREASED TO 1000MG/DAY, THEN TO 2000MG/DAY (DATES NOT PROVIDED)
  2. CARDIZEM CD [Concomitant]
  3. TENORMIN [Concomitant]
  4. BENICAR [Concomitant]
  5. LIPITOR [Concomitant]
  6. ASPIRIN [Concomitant]

REACTIONS (3)
  - ABDOMINAL DISCOMFORT [None]
  - ABDOMINAL DISTENSION [None]
  - FEELING ABNORMAL [None]
